FAERS Safety Report 8069821-0 (Version None)
Quarter: 2012Q1

REPORT INFORMATION
  Report Type: 
  Country: None (occurrence: None)
  Receive Date: 20120125
  Receipt Date: 20120125
  Transmission Date: 20120608
  Serious: Yes (Other)
  Sender: FDA-Public Use
  Company Number: None

PATIENT
  Age: 63 Year
  Sex: Male
  Weight: 93.44 kg

DRUGS (1)
  1. JALYN [Suspect]
     Indication: BENIGN PROSTATIC HYPERPLASIA
     Dosage: 0.5 MG
     Route: 048
     Dates: start: 20101015, end: 20111201

REACTIONS (10)
  - SWELLING [None]
  - HAEMORRHAGE [None]
  - PRURITUS [None]
  - ARTHROPOD BITE [None]
  - BLISTER [None]
  - IMPAIRED HEALING [None]
  - LICHEN PLANUS [None]
  - SKIN EXFOLIATION [None]
  - RASH [None]
  - SKIN ULCER [None]
